FAERS Safety Report 7553101-3 (Version None)
Quarter: 2011Q2

REPORT INFORMATION
  Report Type: 
  Country: None (occurrence: None)
  Receive Date: 20110616
  Receipt Date: 20100421
  Transmission Date: 20111010
  Serious: No
  Sender: FDA-Public Use
  Company Number: US-BAYER-201021034NA

PATIENT
  Sex: Female

DRUGS (2)
  1. MIRENA [Suspect]
     Dosage: 20 ?G/D, CONT
     Route: 015
     Dates: start: 20100420
  2. MIRENA [Suspect]
     Indication: CONTRACEPTION
     Dosage: 20 ?G/D, CONT
     Route: 015
     Dates: start: 20050201, end: 20100401

REACTIONS (4)
  - COMPLICATION OF DEVICE REMOVAL [None]
  - AMENORRHOEA [None]
  - NO ADVERSE EVENT [None]
  - VAGINAL DISCHARGE [None]
